FAERS Safety Report 4812913-7 (Version None)
Quarter: 2005Q4

REPORT INFORMATION
  Report Type: 
  Country: None (occurrence: None)
  Receive Date: 20051028
  Receipt Date: 20050513
  Transmission Date: 20060501
  Serious: No
  Sender: FDA-Public Use
  Company Number: US-GLAXOSMITHKLINE-A0558582A

PATIENT
  Age: 46 Year
  Sex: Male
  Weight: 152.3 kg

DRUGS (4)
  1. ADVAIR DISKUS 100/50 [Suspect]
     Indication: ASTHMA
     Route: 055
     Dates: start: 20050310
  2. ALLEGRA [Concomitant]
     Dosage: 180MG PER DAY
     Route: 048
     Dates: start: 20020601
  3. SINGULAIR [Concomitant]
     Dosage: 10MG PER DAY
     Route: 048
     Dates: start: 20050601
  4. ALBUTEROL [Concomitant]
     Dosage: 2PUFF FOUR TIMES PER DAY
     Route: 048

REACTIONS (3)
  - DRUG INEFFECTIVE [None]
  - DYSPNOEA [None]
  - PHARMACEUTICAL PRODUCT COMPLAINT [None]
